FAERS Safety Report 18269557 (Version 1)
Quarter: 2020Q3

REPORT INFORMATION
  Report Type: Spontaneous
  Country: US (occurrence: US)
  Receive Date: 20200915
  Receipt Date: 20200915
  Transmission Date: 20201103
  Serious: Yes (Death)
  Sender: FDA-Public Use
  Company Number: US-PFIZER INC-2020335251

PATIENT
  Age: 46 Year
  Sex: Male

DRUGS (2)
  1. VFEND [Suspect]
     Active Substance: VORICONAZOLE
     Dosage: 340 MG, 2X/DAY (340 MG IV PIGGYBACK BID (TWICE A DAY) X 1D DAY)
     Route: 042
  2. VFEND [Suspect]
     Active Substance: VORICONAZOLE
     Dosage: 230 MG, 2X/DAY
     Route: 042

REACTIONS (1)
  - Death [Fatal]

NARRATIVE: CASE EVENT DATE: 20200722
